FAERS Safety Report 9900383 (Version 3)
Quarter: 2014Q1

REPORT INFORMATION
  Report Type: Spontaneous
  Country: DE (occurrence: DE)
  Receive Date: 20140216
  Receipt Date: 20140327
  Transmission Date: 20141002
  Serious: Yes (Death)
  Sender: FDA-Public Use
  Company Number: DE-ROCHE-1299702

PATIENT
  Age: 53 Year
  Sex: Male
  Weight: 100 kg

DRUGS (10)
  1. ZELBORAF [Suspect]
     Indication: METASTASIS
     Dosage: 1-0-1
     Route: 048
     Dates: start: 20130710, end: 20131113
  2. ZELBORAF [Suspect]
     Indication: MALIGNANT MELANOMA
  3. VIMPAT [Concomitant]
     Indication: EPILEPSY
     Dosage: 1-0-1
     Route: 048
     Dates: start: 201302, end: 20131113
  4. KEPPRA [Concomitant]
     Indication: EPILEPSY
     Dosage: 1-0-1
     Route: 048
     Dates: start: 201302, end: 20131113
  5. DEXAMETHASON [Concomitant]
     Indication: METASTASES TO CENTRAL NERVOUS SYSTEM
     Route: 048
     Dates: start: 201302, end: 20131113
  6. JANUMET [Concomitant]
     Indication: DIABETES MELLITUS
     Route: 048
  7. HYDROCHLOROTHIAZIDE [Concomitant]
     Indication: HYPERTENSION
     Route: 048
  8. DELIX (GERMANY) [Concomitant]
     Indication: HYPERTENSION
     Route: 048
  9. CLEXANE [Concomitant]
     Indication: THROMBOSIS PROPHYLAXIS
     Route: 058
  10. PENTAZOLE [Concomitant]
     Route: 048
     Dates: start: 201302, end: 20131113

REACTIONS (3)
  - Pneumonitis [Fatal]
  - Metastases to central nervous system [Not Recovered/Not Resolved]
  - Malignant neoplasm progression [Not Recovered/Not Resolved]
